FAERS Safety Report 4699626-X (Version None)
Quarter: 2005Q2

REPORT INFORMATION
  Report Type: 
  Country: None (occurrence: None)
  Receive Date: 20050623
  Receipt Date: 20050610
  Transmission Date: 20051028
  Serious: Yes (Hospitalization)
  Sender: FDA-Public Use
  Company Number: HQWYE362710JUN05

PATIENT
  Age: 83 Year
  Sex: Female

DRUGS (10)
  1. CORDARONE [Suspect]
     Indication: ATRIAL FIBRILLATION
     Dosage: 200 MG 1X PER 1 DAY
     Route: 048
     Dates: start: 20050317
  2. AUGMENTIN [Suspect]
     Indication: PYREXIA
     Route: 048
     Dates: start: 20050319, end: 20050325
  3. DIGOXIN [Suspect]
     Indication: ATRIAL FIBRILLATION
     Dosage: 0.5 MG 1X PER 1 DAY
     Route: 048
     Dates: start: 20050318
  4. LASIX [Suspect]
     Indication: ARRHYTHMIA
     Route: 048
     Dates: start: 20050317, end: 20050321
  5. PREVISCAN (FLUINDIONE) [Suspect]
     Indication: ATRIAL FIBRILLATION
     Dosage: SEE IMAGE
     Route: 048
     Dates: start: 20050312, end: 20050320
  6. PREVISCAN (FLUINDIONE) [Suspect]
     Indication: ATRIAL FIBRILLATION
     Dosage: SEE IMAGE
     Route: 048
     Dates: start: 20050321, end: 20050324
  7. DILTIAZEM HYDROCHLORIDE [Suspect]
     Indication: ARRHYTHMIA
     Dosage: 60 MG 3X PER 1 DAY
     Route: 048
     Dates: start: 20050317
  8. MUCOMYST [Concomitant]
  9. BRICANYL [Concomitant]
  10. ATROVENT [Concomitant]

REACTIONS (10)
  - BLOOD PRESSURE INCREASED [None]
  - BLOOD SODIUM DECREASED [None]
  - DEHYDRATION [None]
  - DRUG INTERACTION [None]
  - INTERNATIONAL NORMALISED RATIO INCREASED [None]
  - OVERDOSE [None]
  - PYREXIA [None]
  - RENAL FAILURE ACUTE [None]
  - THERAPY NON-RESPONDER [None]
  - WHITE BLOOD CELL COUNT INCREASED [None]
